FAERS Safety Report 9652817 (Version 3)
Quarter: 2013Q4

REPORT INFORMATION
  Report Type: Spontaneous
  Country: US (occurrence: US)
  Receive Date: 20131029
  Receipt Date: 20131211
  Transmission Date: 20140711
  Serious: Yes (Other)
  Sender: FDA-Public Use
  Company Number: US-GLAXOSMITHKLINE-A1046920A

PATIENT
  Age: 54 Year
  Sex: Male

DRUGS (8)
  1. BENLYSTA [Suspect]
     Indication: SYSTEMIC LUPUS ERYTHEMATOSUS
     Route: 042
     Dates: start: 20130708
  2. PREDNISONE [Concomitant]
     Dosage: 8MG PER DAY
     Dates: start: 20130517
  3. PLAQUENIL [Concomitant]
     Dates: start: 20130204
  4. KEPPRA [Concomitant]
     Dates: start: 20130103
  5. ANDROGEL [Concomitant]
     Route: 061
     Dates: start: 20130829
  6. MELOXICAM [Concomitant]
  7. ASPIRIN [Concomitant]
  8. LEVOTHYROXINE [Concomitant]

REACTIONS (2)
  - Squamous cell carcinoma of skin [Recovered/Resolved]
  - Weight decreased [Recovered/Resolved]
